FAERS Safety Report 6981325-2 (Version None)
Quarter: 2010Q3

REPORT INFORMATION
  Report Type: 
  Country: None (occurrence: None)
  Receive Date: 20100909
  Receipt Date: 20100819
  Transmission Date: 20110219
  Serious: Yes (Other)
  Sender: FDA-Public Use
  Company Number: IMP_05034_2010

PATIENT
  Sex: Male
  Weight: 70.3075 kg

DRUGS (6)
  1. PYRIDOSTIGMINE BROMIDE [Suspect]
     Indication: MYASTHENIA GRAVIS
     Dosage: (60 MG QID), (60 MG 5X/DAY)
     Dates: start: 20070101
  2. PYRIDOSTIGMINE BROMIDE [Suspect]
     Indication: MYASTHENIA GRAVIS
     Dosage: (60 MG QID), (60 MG 5X/DAY)
     Dates: start: 20100101
  3. PREDNISONE [Concomitant]
  4. ANTIBIOTICS [Concomitant]
  5. FLOMAX /01280302/ [Concomitant]
  6. IMURAN [Concomitant]

REACTIONS (8)
  - DRUG INEFFECTIVE [None]
  - EAR INFECTION [None]
  - HYPOAESTHESIA ORAL [None]
  - IDIOPATHIC THROMBOCYTOPENIC PURPURA [None]
  - MONOPARESIS [None]
  - MYASTHENIA GRAVIS [None]
  - SUDDEN VISUAL LOSS [None]
  - VIITH NERVE PARALYSIS [None]
